FAERS Safety Report 4548387-3 (Version None)
Quarter: 2005Q1

REPORT INFORMATION
  Report Type: 
  Country: None (occurrence: None)
  Receive Date: 20050110
  Receipt Date: 20041229
  Transmission Date: 20050727
  Serious: Yes (Hospitalization)
  Sender: FDA-Public Use
  Company Number: DE-ROCHE-390898

PATIENT
  Sex: Male
  Weight: 100 kg

DRUGS (5)
  1. PEG-INTERFERON ALFA 2A (RO 25-8310) [Suspect]
     Route: 058
     Dates: start: 20040507
  2. REBETOL [Suspect]
     Route: 048
     Dates: start: 20040507
  3. AMANTADINE HCL [Suspect]
     Route: 048
     Dates: start: 20040507
  4. ACETAMINOPHEN [Concomitant]
     Route: 048
     Dates: start: 20040507
  5. PAROXETINE HCL [Concomitant]
     Indication: DEPRESSION
     Route: 048
     Dates: start: 20040507

REACTIONS (5)
  - DEPRESSION [None]
  - DEREALISATION [None]
  - GRAND MAL CONVULSION [None]
  - HYPERTHYROIDISM [None]
  - SLEEP DISORDER [None]
